FAERS Safety Report 4842018-0 (Version None)
Quarter: 2005Q4

REPORT INFORMATION
  Report Type: 
  Country: None (occurrence: None)
  Receive Date: 20051130
  Receipt Date: 20051031
  Transmission Date: 20060501
  Serious: No
  Sender: FDA-Public Use
  Company Number: US-GLAXOSMITHKLINE-A0580300A

PATIENT
  Age: 36 Year
  Sex: Female

DRUGS (3)
  1. WELLBUTRIN XL [Suspect]
     Indication: DRUG USE FOR UNKNOWN INDICATION
     Dosage: 300MG PER DAY
     Route: 048
     Dates: start: 20050830
  2. ALCOHOLIC BEVERAGE [Suspect]
     Route: 048
  3. EFFEXOR [Concomitant]

REACTIONS (2)
  - BURNING SENSATION [None]
  - FLUSHING [None]
